FAERS Safety Report 16383867 (Version 1)
Quarter: 2019Q2

REPORT INFORMATION
  Report Type: Spontaneous
  Country: IT (occurrence: IT)
  Receive Date: 20190603
  Receipt Date: 20190603
  Transmission Date: 20190711
  Serious: Yes (Other)
  Sender: FDA-Public Use
  Company Number: IT-GLAXOSMITHKLINE-IT2019040759

PATIENT
  Age: 8 Year
  Sex: Male
  Weight: 35 kg

DRUGS (7)
  1. CONTRAMAL [Suspect]
     Active Substance: TRAMADOL HYDROCHLORIDE
     Indication: PROCEDURAL PAIN
     Dosage: 150 MG, QD
     Route: 042
     Dates: start: 20181230, end: 20181230
  2. DEFLAMON [Suspect]
     Active Substance: METRONIDAZOLE
     Indication: APPENDICITIS
     Dosage: 135 ML, QD
     Route: 042
     Dates: start: 20181228, end: 20181230
  3. GLAZIDIM [Suspect]
     Active Substance: CEFTAZIDIME
     Indication: APPENDICITIS
     Dosage: 2.25 G, QD
     Route: 042
     Dates: start: 20181228, end: 20181230
  4. MIDAZOLAM [Concomitant]
     Active Substance: MIDAZOLAM HYDROCHLORIDE
     Indication: ANAESTHESIA
     Dosage: 2.5 MG, UNK
     Route: 042
     Dates: start: 20181230, end: 20181230
  5. TORADOL [Suspect]
     Active Substance: KETOROLAC TROMETHAMINE
     Indication: PROCEDURAL PAIN
     Dosage: 40 MG, QD
     Route: 042
     Dates: start: 20181230, end: 20181230
  6. ZANTAC [Suspect]
     Active Substance: RANITIDINE HYDROCHLORIDE
     Indication: ANAESTHETIC PREMEDICATION
     Dosage: 100 MG, QD
     Route: 042
     Dates: start: 20181230, end: 20181230
  7. ZOFRAN [Suspect]
     Active Substance: ONDANSETRON HYDROCHLORIDE
     Indication: PROCEDURAL VOMITING
     Dosage: 4 MG, QD
     Route: 042
     Dates: start: 20181230, end: 20181230

REACTIONS (2)
  - Off label use [Unknown]
  - Rash [Unknown]

NARRATIVE: CASE EVENT DATE: 20181230
